FAERS Safety Report 7736775-3 (Version None)
Quarter: 2011Q3

REPORT INFORMATION
  Report Type: 
  Country: None (occurrence: None)
  Receive Date: 20110908
  Receipt Date: 20110902
  Transmission Date: 20111222
  Serious: Yes (Death, Life-Threatening, Other)
  Sender: FDA-Public Use
  Company Number: PHHY2010JP56454

PATIENT
  Sex: Male
  Weight: 60 kg

DRUGS (3)
  1. AFINITOR [Suspect]
     Indication: RENAL CELL CARCINOMA STAGE IV
     Dosage: 10 MG, DAILY
     Route: 048
     Dates: start: 20100729, end: 20100823
  2. DECADRON [Suspect]
     Indication: RENAL CELL CARCINOMA
     Dosage: 1 MG, UNK
     Route: 048
     Dates: start: 20100609, end: 20100822
  3. SUNITINIB MALATE [Concomitant]
     Indication: RENAL CELL CARCINOMA
     Dosage: 50 MG, UNK
     Route: 048
     Dates: start: 20100614, end: 20100629

REACTIONS (11)
  - DYSPNOEA [None]
  - DEPRESSED LEVEL OF CONSCIOUSNESS [None]
  - HYPERGLYCAEMIA [None]
  - CYANOSIS [None]
  - PYREXIA [None]
  - INTERSTITIAL LUNG DISEASE [None]
  - NEOPLASM PROGRESSION [None]
  - NEOPLASM MALIGNANT [None]
  - PNEUMOCYSTIS JIROVECI PNEUMONIA [None]
  - C-REACTIVE PROTEIN INCREASED [None]
  - PLEURAL EFFUSION [None]
